FAERS Safety Report 24917271 (Version 1)
Quarter: 2025Q1

REPORT INFORMATION
  Report Type: Spontaneous
  Country: FR (occurrence: FR)
  Receive Date: 20250203
  Receipt Date: 20250203
  Transmission Date: 20250409
  Serious: Yes (Other)
  Sender: FRESENIUS KABI
  Company Number: None

PATIENT
  Age: 47 Year
  Sex: Male
  Weight: 100 kg

DRUGS (17)
  1. PIPERACILLIN SODIUM\TAZOBACTAM SODIUM [Suspect]
     Active Substance: PIPERACILLIN SODIUM\TAZOBACTAM SODIUM
     Indication: Pneumonia
     Dosage: CONTINUOUSLY
     Route: 042
     Dates: start: 20241205
  2. COTRIMOXAZOLE [Suspect]
     Active Substance: SULFAMETHOXAZOLE\TRIMETHOPRIM
     Indication: Antifungal prophylaxis
     Dosage: 800/160MG MON WEND FRID?VIA GASTROSTOMY
     Route: 048
     Dates: start: 20250105, end: 20250121
  3. COTRIMOXAZOLE [Suspect]
     Active Substance: SULFAMETHOXAZOLE\TRIMETHOPRIM
     Dosage: 800/160MG MON WEND FRID?VIA GASTROSTOMY
     Route: 048
     Dates: start: 20241021, end: 20241106
  4. RAMIPRIL [Suspect]
     Active Substance: RAMIPRIL
     Indication: Hypertension
     Dosage: VIA GASTROSTOMY
     Route: 048
     Dates: start: 20250102, end: 20250121
  5. LANSOPRAZOLE [Suspect]
     Active Substance: LANSOPRAZOLE
     Indication: Complication associated with device
     Dosage: VIA SNG
     Route: 048
     Dates: start: 20240923
  6. HYDROXYZINE HYDROCHLORIDE [Suspect]
     Active Substance: HYDROXYZINE HYDROCHLORIDE
     Indication: Anxiety
     Dosage: 12,5-12,5-25MG?VIA GASTROSTOMY
     Route: 048
     Dates: start: 20241220
  7. LOVENOX [Suspect]
     Active Substance: ENOXAPARIN SODIUM
     Indication: Thrombosis prophylaxis
     Route: 058
     Dates: start: 20240909
  8. RITUXIMAB [Suspect]
     Active Substance: RITUXIMAB
     Indication: Acute disseminated encephalomyelitis
     Route: 042
     Dates: start: 20241001, end: 20241001
  9. RITUXIMAB [Suspect]
     Active Substance: RITUXIMAB
     Route: 042
     Dates: start: 20240917, end: 20240917
  10. ALENDRONIC ACID TEVA 70 mg, tablet [alendronate sodium monohydrate] [Concomitant]
     Indication: Osteoporosis
     Dosage: MONDAYS?VIA GASTROSTOMY
     Route: 048
     Dates: start: 20241205
  11. CALCIDOSE VITAMIN D, oral powder in sachet [CALCIUM CARBONATE, CHOLECA [Concomitant]
     Indication: Osteoporosis
     Dosage: 500/400UI 1-0-1?VIA SNG
     Route: 048
     Dates: start: 20241205
  12. AMLODIPINE ARROW 10 mg, tablet [Concomitant]
     Indication: Hypertension
     Dosage: VIA GASTROSTOMY
     Route: 048
     Dates: start: 20240918
  13. HYDROCORTISONE ROUSSEL 10 mg, tablet [Concomitant]
     Indication: Acute disseminated encephalomyelitis
     Dosage: VIA GASTROSTOMY
     Route: 048
     Dates: start: 20240918
  14. ABASAGLAR 100 units/ml, solution for injection in pre-filled pen [INSU [Concomitant]
     Indication: Steroid diabetes
     Route: 058
     Dates: start: 20241018
  15. DOLIPRANE 150 mg, powder for oral solution in sachet [Concomitant]
     Indication: Pain
     Route: 048
     Dates: start: 202411
  16. PAROXETINE HYDROCHLORIDE [Concomitant]
     Active Substance: PAROXETINE HYDROCHLORIDE
     Indication: Depression
     Dosage: VIA GASTROSTOMY
     Route: 048
     Dates: start: 20250117
  17. GLUCIDION G 5, solution for injection for infusion [Concomitant]
     Indication: Parenteral nutrition
     Dosage: WITH VITB6, NURTYELT, CERNEVIT, KCL
     Route: 042
     Dates: start: 20250113

REACTIONS (1)
  - Agranulocytosis [Not Recovered/Not Resolved]

NARRATIVE: CASE EVENT DATE: 20250121
